FAERS Safety Report 5075763-5 (Version None)
Quarter: 2006Q3

REPORT INFORMATION
  Report Type: 
  Country: None (occurrence: None)
  Receive Date: 20060809
  Receipt Date: 20060616
  Transmission Date: 20061208
  Serious: Yes (Hospitalization)
  Sender: FDA-Public Use
  Company Number: FR-NOVOPROD-254291

PATIENT
  Age: 22 Year
  Sex: Male
  Weight: 84 kg

DRUGS (5)
  1. NORDITROPIN SIMPLEXX [Suspect]
     Indication: GROWTH HORMONE DEFICIENCY
     Dosage: .2 MG, QD
     Route: 048
     Dates: start: 20050427
  2. MINIRIN [Concomitant]
     Dosage: .3 MG, QD
     Route: 048
     Dates: start: 20000101
  3. LEVOTHYROXINE SODIUM [Concomitant]
     Dosage: 75 MG, QD
     Route: 048
     Dates: start: 20020101
  4. HYDROCORTISONE TAB [Concomitant]
     Dosage: 20 MG, QD
     Dates: start: 20030101
  5. ANDROTARDYL [Concomitant]
     Dosage: 250 MG, MONTHLY
     Dates: start: 20020101

REACTIONS (1)
  - WRIST FRACTURE [None]
